FAERS Safety Report 11687080 (Version 1)
Quarter: 2015Q4

REPORT INFORMATION
  Report Type: Spontaneous
  Country: US (occurrence: US)
  Receive Date: 20151030
  Receipt Date: 20151030
  Transmission Date: 20160304
  Serious: Yes (Congenital Anomaly)
  Sender: FDA-Public Use
  Company Number: PHHY2015US140814

PATIENT
  Sex: Female

DRUGS (4)
  1. ALBUTEROL. [Suspect]
     Active Substance: ALBUTEROL
     Indication: FOETAL EXPOSURE DURING PREGNANCY
     Route: 064
  2. ZOFRAN [Suspect]
     Active Substance: ONDANSETRON HYDROCHLORIDE
     Indication: FOETAL EXPOSURE DURING PREGNANCY
     Route: 064
  3. GLYBURIDE. [Suspect]
     Active Substance: GLYBURIDE
     Indication: FOETAL EXPOSURE DURING PREGNANCY
     Route: 064
  4. REGLAN [Suspect]
     Active Substance: METOCLOPRAMIDE HYDROCHLORIDE
     Indication: FOETAL EXPOSURE DURING PREGNANCY
     Route: 064

REACTIONS (13)
  - Cleft palate [Unknown]
  - Cleft uvula [Unknown]
  - Soft tissue mass [Unknown]
  - Dysmorphism [Unknown]
  - Hypertelorism of orbit [Unknown]
  - Coloboma [Unknown]
  - Lagophthalmos [Unknown]
  - Hypoplastic nasal cartilage [Unknown]
  - Microphthalmos [Unknown]
  - Foetal exposure during pregnancy [Unknown]
  - Congenital osteodystrophy [Unknown]
  - Micrognathia [Unknown]
  - Skin hypoplasia [Unknown]
